FAERS Safety Report 20960266 (Version 1)
Quarter: 2022Q2

REPORT INFORMATION
  Report Type: Spontaneous
  Country: FR (occurrence: FR)
  Receive Date: 20220615
  Receipt Date: 20220615
  Transmission Date: 20220721
  Serious: Yes (Other)
  Sender: FDA-Public Use
  Company Number: FR-NOVARTISPH-NVSC2022FR135864

PATIENT
  Sex: Male

DRUGS (1)
  1. TEGRETOL [Suspect]
     Active Substance: CARBAMAZEPINE
     Indication: Epilepsy
     Dosage: 1 DOSAGE FORM, BID
     Route: 065
     Dates: start: 2000

REACTIONS (16)
  - Loss of consciousness [Unknown]
  - Suicidal ideation [Unknown]
  - Brain injury [Unknown]
  - Ill-defined disorder [Unknown]
  - Anxiety [Unknown]
  - Stress [Unknown]
  - Diarrhoea [Unknown]
  - Visual impairment [Unknown]
  - Memory impairment [Unknown]
  - Balance disorder [Unknown]
  - Cardiovascular disorder [Unknown]
  - Mood altered [Unknown]
  - Heart rate increased [Unknown]
  - Insomnia [Unknown]
  - Renal pain [Unknown]
  - Hepatic pain [Unknown]
